FAERS Safety Report 7517500-8 (Version None)
Quarter: 2011Q2

REPORT INFORMATION
  Report Type: 
  Country: None (occurrence: None)
  Receive Date: 20110601
  Receipt Date: 20110517
  Transmission Date: 20111010
  Serious: Yes (Other)
  Sender: FDA-Public Use
  Company Number: PHHY2011MX43008

PATIENT

DRUGS (4)
  1. ANTI-THYMOCYTE GLOBULIN NOS [Concomitant]
  2. CYCLOSPORINE [Suspect]
     Indication: IMMUNOSUPPRESSION
     Dosage: 3 MG/KG,
  3. CYCLOPHOSPHAMIDE [Concomitant]
     Dosage: 120 MG/KG,
  4. METHYLPREDNISOLONE [Concomitant]
     Indication: IMMUNOSUPPRESSION
     Dosage: 2 MG/KG,

REACTIONS (14)
  - DYSURIA [None]
  - BONE MARROW FAILURE [None]
  - VOMITING [None]
  - NEUTROPENIA [None]
  - OBSTRUCTIVE UROPATHY [None]
  - MUCOSAL INFLAMMATION [None]
  - BLOOD CREATINE ABNORMAL [None]
  - DEPRESSION [None]
  - HAEMATURIA [None]
  - DIARRHOEA [None]
  - PYREXIA [None]
  - RENAL FAILURE ACUTE [None]
  - CYSTITIS HAEMORRHAGIC [None]
  - HYPERTENSION [None]
